FAERS Safety Report 5272078-7 (Version None)
Quarter: 2007Q1

REPORT INFORMATION
  Report Type: 
  Country: None (occurrence: None)
  Receive Date: 20070322
  Receipt Date: 20070319
  Transmission Date: 20070707
  Serious: Yes (Death, Hospitalization, Other)
  Sender: FDA-Public Use
  Company Number: GBWYE101911OCT04

PATIENT
  Sex: Male
  Weight: 57.6 kg

DRUGS (10)
  1. TACROLIMUS [Suspect]
     Indication: PROPHYLAXIS AGAINST TRANSPLANT REJECTION
     Dosage: 2MG AM, 1.5MG PM
     Route: 048
     Dates: start: 19980609
  2. AMLODIPINE [Concomitant]
     Indication: HYPERTENSION
     Dosage: 5MG
     Dates: start: 20030512, end: 20041008
  3. RANITIDINE [Concomitant]
     Indication: DYSPEPSIA
     Dosage: 150MG
     Dates: start: 20030114, end: 20040814
  4. OMEPRAZOLE [Concomitant]
     Indication: PROPHYLAXIS AGAINST GASTROINTESTINAL ULCER
     Dosage: 20 MG, FREQUENCY UNKNOWN
     Dates: start: 20041019
  5. CLOPIDOGREL [Concomitant]
     Dosage: UNKNOWN
     Dates: start: 20000905, end: 20041008
  6. FOLIC ACID [Concomitant]
     Indication: VITAMIN SUPPLEMENTATION
     Dosage: UNKNOWN
     Dates: start: 20000523, end: 20041014
  7. ALFACALCIDOL [Concomitant]
     Indication: VITAMIN SUPPLEMENTATION
     Dosage: 500 MG, FREQUENCY UNKNOWN
     Route: 048
     Dates: start: 19980707, end: 20041008
  8. COMBIVENT [Concomitant]
     Indication: DYSPNOEA
     Dosage: UNKNOWN
     Dates: start: 20040823
  9. SODIUM BICARBONATE [Concomitant]
     Indication: MINERAL SUPPLEMENTATION
     Dosage: UNKNOWN
     Dates: start: 20040315, end: 20041008
  10. CALCIUM [Concomitant]
     Indication: MINERAL SUPPLEMENTATION
     Dosage: 500MG
     Dates: start: 20000905, end: 20041008

REACTIONS (9)
  - CEREBROVASCULAR ACCIDENT [None]
  - EMPHYSEMA [None]
  - HILAR LYMPHADENOPATHY [None]
  - OESOPHAGEAL SQUAMOUS CELL CARCINOMA [None]
  - PANCREATIC ATROPHY [None]
  - PNEUMONIA ASPIRATION [None]
  - RENAL FAILURE CHRONIC [None]
  - SEPSIS [None]
  - STENT OCCLUSION [None]
